FAERS Safety Report 11755949 (Version 1)
Quarter: 2015Q4

REPORT INFORMATION
  Report Type: Spontaneous
  Country: US (occurrence: US)
  Receive Date: 20151119
  Receipt Date: 20151119
  Transmission Date: 20160304
  Serious: No
  Sender: FDA-Public Use
  Company Number: US-ALLERGAN-1507176US

PATIENT
  Age: 60 Year
  Sex: Female
  Weight: 58.96 kg

DRUGS (5)
  1. NORVASC [Concomitant]
     Active Substance: AMLODIPINE BESYLATE
     Indication: HYPERTENSION
     Dosage: 1.25 MG, QD
     Route: 048
  2. TIMOLOL MALEATE. [Suspect]
     Active Substance: TIMOLOL MALEATE
     Indication: GLAUCOMA
     Dosage: 1 GTT, QHS
     Route: 047
     Dates: end: 201503
  3. ESTROGEN [Concomitant]
     Active Substance: ESTRONE\SUS SCROFA OVARY
     Indication: OESTROGEN REPLACEMENT THERAPY
     Dosage: UNK
  4. TRAVATAN [Concomitant]
     Active Substance: TRAVOPROST
     Indication: GLAUCOMA
     Dosage: 1 GTT, QAM
     Route: 047
  5. ALPHAGAN P [Suspect]
     Active Substance: BRIMONIDINE TARTRATE
     Indication: GLAUCOMA
     Dosage: 1 GTT QAM AND QHS
     Route: 047
     Dates: start: 20150313, end: 20150407

REACTIONS (22)
  - Intraocular pressure increased [Recovered/Resolved]
  - Muscle spasms [Not Recovered/Not Resolved]
  - Photophobia [Recovered/Resolved]
  - Dyskinesia [Recovered/Resolved]
  - Halo vision [Recovered/Resolved]
  - Night blindness [Recovered/Resolved]
  - Vomiting [Recovered/Resolved with Sequelae]
  - Dizziness [Recovered/Resolved]
  - Drug ineffective [Unknown]
  - Feeling abnormal [Recovered/Resolved with Sequelae]
  - Tremor [Recovered/Resolved]
  - Dyspepsia [Recovered/Resolved with Sequelae]
  - Palpitations [Recovered/Resolved]
  - Extrasystoles [Recovered/Resolved]
  - Hypotension [Recovered/Resolved]
  - Eye inflammation [Recovered/Resolved]
  - Tongue movement disturbance [Recovered/Resolved with Sequelae]
  - Dysgeusia [Recovered/Resolved]
  - Nervousness [Recovered/Resolved]
  - Photophobia [Recovered/Resolved]
  - Transient ischaemic attack [Recovered/Resolved]
  - Heart rate decreased [Recovered/Resolved]

NARRATIVE: CASE EVENT DATE: 201503
